FAERS Safety Report 26170797 (Version 1)
Quarter: 2025Q4

REPORT INFORMATION
  Report Type: Spontaneous
  Country: EU (occurrence: EU)
  Receive Date: 20251217
  Receipt Date: 20251217
  Transmission Date: 20260117
  Serious: Yes (Other)
  Sender: SANOFI AVENTIS
  Company Number: None

PATIENT
  Age: 8 Week
  Sex: Female
  Weight: 5.2 kg

DRUGS (2)
  1. BEYFORTUS [Suspect]
     Active Substance: NIRSEVIMAB-ALIP
     Indication: Immunisation
     Dosage: 1 DF
     Route: 048
     Dates: start: 20250930, end: 20250930
  2. ROTARIX [Suspect]
     Active Substance: HUMAN ROTAVIRUS A TYPE G1P(8) STRAIN RIX4414 LIVE ANTIGEN
     Indication: Immunisation
     Dosage: 1 DF
     Route: 048
     Dates: start: 20250930

REACTIONS (3)
  - Failure to thrive [Not Recovered/Not Resolved]
  - Hypophagia [Recovering/Resolving]
  - Infantile spitting up [Recovering/Resolving]

NARRATIVE: CASE EVENT DATE: 20250930
